FAERS Safety Report 18850608 (Version 1)
Quarter: 2021Q1

REPORT INFORMATION
  Report Type: Spontaneous
  Country: FR (occurrence: FR)
  Receive Date: 20210204
  Receipt Date: 20210204
  Transmission Date: 20210420
  Serious: Yes (Other)
  Sender: FDA-Public Use
  Company Number: NVSC2021FR020379

PATIENT
  Age: 53 Year
  Sex: Female

DRUGS (6)
  1. DALCINE [Suspect]
     Active Substance: CLINDAMYCIN HYDROCHLORIDE
     Indication: PRODUCT USED FOR UNKNOWN INDICATION
     Dosage: 2 DF, TID, 300 MG
     Route: 048
  2. COTRIMOXAZOLE [Suspect]
     Active Substance: SULFAMETHOXAZOLE\TRIMETHOPRIM
     Indication: LOCALISED INFECTION
     Dosage: 3 DF, QD (1 DF, TID, 800/160)
     Route: 048
  3. ANTADYS [Concomitant]
     Active Substance: FLURBIPROFEN
     Indication: INFLAMMATION
     Dosage: UNK
     Route: 065
     Dates: start: 20201128
  4. LEVOFLOXACIN. [Suspect]
     Active Substance: LEVOFLOXACIN
     Indication: LOCALISED INFECTION
     Dosage: 1.5 DF, QD
     Route: 048
     Dates: start: 20201130, end: 20201207
  5. BACTRIM [Suspect]
     Active Substance: SULFAMETHOXAZOLE\TRIMETHOPRIM
     Indication: PRODUCT USED FOR UNKNOWN INDICATION
     Dosage: UNK
     Route: 065
  6. AMOXICILLIN, CLAVULANIC ACID [Suspect]
     Active Substance: AMOXICILLIN\CLAVULANIC ACID
     Indication: LOCALISED INFECTION
     Dosage: UNK
     Route: 065
     Dates: start: 20201027, end: 20201103

REACTIONS (24)
  - Head discomfort [Unknown]
  - Back pain [Not Recovered/Not Resolved]
  - Headache [Not Recovered/Not Resolved]
  - Arthralgia [Unknown]
  - Hypoaesthesia [Not Recovered/Not Resolved]
  - Peripheral coldness [Not Recovered/Not Resolved]
  - Joint swelling [Not Recovered/Not Resolved]
  - Pain in extremity [Not Recovered/Not Resolved]
  - Erythema [Not Recovered/Not Resolved]
  - Muscular weakness [Not Recovered/Not Resolved]
  - Paraesthesia [Not Recovered/Not Resolved]
  - Nervous system disorder [Unknown]
  - Insomnia [Unknown]
  - Limb discomfort [Not Recovered/Not Resolved]
  - Tendonitis [Unknown]
  - Drug ineffective [Unknown]
  - Dysgeusia [Unknown]
  - Discomfort [Not Recovered/Not Resolved]
  - Withdrawal syndrome [Unknown]
  - Pruritus [Not Recovered/Not Resolved]
  - Asthenia [Unknown]
  - Rash [Not Recovered/Not Resolved]
  - Neuropathy peripheral [Unknown]
  - Musculoskeletal discomfort [Unknown]
